FAERS Safety Report 5373853-0 (Version None)
Quarter: 2007Q2

REPORT INFORMATION
  Report Type: 
  Country: None (occurrence: None)
  Receive Date: 20070627
  Receipt Date: 20070115
  Transmission Date: 20071010
  Serious: Yes (Other)
  Sender: FDA-Public Use
  Company Number: 478516

PATIENT
  Age: 69 Year
  Sex: Male
  Weight: 74.8 kg

DRUGS (1)
  1. XELODA [Suspect]
     Indication: PANCREATIC DISORDER
     Dosage: 1500 MG 2 PER DAY ORAL
     Route: 048
     Dates: start: 20061115, end: 20070115

REACTIONS (1)
  - PALMAR-PLANTAR ERYTHRODYSAESTHESIA SYNDROME [None]
